FAERS Safety Report 18654304 (Version 3)
Quarter: 2021Q1

REPORT INFORMATION
  Report Type: Spontaneous
  Country: US (occurrence: US)
  Receive Date: 20201223
  Receipt Date: 20210302
  Transmission Date: 20210419
  Serious: Yes (Other)
  Sender: FDA-Public Use
  Company Number: US-ELI_LILLY_AND_COMPANY-US202012010610

PATIENT
  Sex: Female
  Weight: 117 kg

DRUGS (1)
  1. BAMLANIVIMAB. [Suspect]
     Active Substance: BAMLANIVIMAB
     Indication: COVID-19
     Dosage: 700 MG, SINGLE
     Route: 042
     Dates: start: 20201204, end: 20201204

REACTIONS (5)
  - Sinusitis [Unknown]
  - Dyspnoea exertional [Unknown]
  - Ear pain [Unknown]
  - Rhinorrhoea [Unknown]
  - Tympanic membrane hyperaemia [Unknown]
